FAERS Safety Report 12084597 (Version 1)
Quarter: 2016Q1

REPORT INFORMATION
  Report Type: Spontaneous
  Country: US (occurrence: US)
  Receive Date: 20160217
  Receipt Date: 20160217
  Transmission Date: 20160526
  Serious: No
  Sender: FDA-Public Use
  Company Number: US-PFIZER INC-2016077349

PATIENT
  Age: 73 Year
  Sex: Female

DRUGS (1)
  1. GABAPENTIN. [Suspect]
     Active Substance: GABAPENTIN
     Dosage: 2800 MG, 1X/DAY (DIVIDED DOSES)

REACTIONS (3)
  - Pain [Unknown]
  - Movement disorder [Unknown]
  - Activities of daily living impaired [Unknown]
